FAERS Safety Report 19794577 (Version 1)
Quarter: 2021Q3

REPORT INFORMATION
  Report Type: Spontaneous
  Country: DE (occurrence: DE)
  Receive Date: 20210907
  Receipt Date: 20210907
  Transmission Date: 20211014
  Serious: Yes (Other)
  Sender: FDA-Public Use
  Company Number: DE-SUN PHARMACEUTICAL INDUSTRIES LTD-2021RR-310237

PATIENT
  Age: 51 Year
  Sex: Male

DRUGS (7)
  1. L?THYROXIN [Concomitant]
     Active Substance: LEVOTHYROXINE SODIUM
     Indication: PRODUCT USED FOR UNKNOWN INDICATION
     Dosage: UNK
     Route: 065
  2. FOLINIC?ACID [Suspect]
     Active Substance: LEUCOVORIN
     Indication: MALIGNANT MELANOMA STAGE IV
     Dosage: 4 CYCLES
     Route: 065
     Dates: start: 201708, end: 201710
  3. NIVOLUMAB [Concomitant]
     Active Substance: NIVOLUMAB
     Indication: MALIGNANT MELANOMA STAGE IV
     Dosage: UNK
     Route: 065
     Dates: start: 201708, end: 201710
  4. OXALIPLATIN. [Suspect]
     Active Substance: OXALIPLATIN
     Indication: MALIGNANT MELANOMA STAGE IV
     Dosage: 4 CYCLES
     Route: 065
     Dates: start: 201708, end: 201710
  5. IPILIMUMAB [Concomitant]
     Active Substance: IPILIMUMAB
     Indication: MALIGNANT MELANOMA STAGE IV
     Dosage: UNK
     Route: 065
     Dates: start: 201708, end: 201710
  6. HYDROCORTISONE. [Concomitant]
     Active Substance: HYDROCORTISONE
     Indication: PRODUCT USED FOR UNKNOWN INDICATION
     Dosage: UNK
     Route: 065
  7. FLUOROURACIL. [Suspect]
     Active Substance: FLUOROURACIL
     Indication: MALIGNANT MELANOMA STAGE IV
     Dosage: 4 CYCLES
     Route: 065
     Dates: start: 201708, end: 201710

REACTIONS (2)
  - Hypophysitis [Unknown]
  - Autoimmune hepatitis [Unknown]
